FAERS Safety Report 25288109 (Version 1)
Quarter: 2025Q2

REPORT INFORMATION
  Report Type: Report from Study
  Country: US (occurrence: US)
  Receive Date: 20250509
  Receipt Date: 20250509
  Transmission Date: 20250717
  Serious: No
  Sender: ACADIA PHARMACEUTICALS
  Company Number: US-ACADIA PHARMACEUTICALS INC.-ACA-2025-PIM-005270

PATIENT
  Age: 74 Year
  Sex: Female

DRUGS (11)
  1. NUPLAZID [Suspect]
     Active Substance: PIMAVANSERIN TARTRATE
     Indication: Parkinson^s disease
     Dosage: 34 MILLIGRAM, QD
     Route: 048
     Dates: start: 20250328
  2. ASPIRIN [Concomitant]
     Active Substance: ASPIRIN
  3. ATENOLOL [Concomitant]
     Active Substance: ATENOLOL
  4. CARBIDOPA\LEVODOPA [Concomitant]
     Active Substance: CARBIDOPA\LEVODOPA
  5. CEPHALEXIN [Concomitant]
     Active Substance: CEPHALEXIN
  6. DULOXETINE [Concomitant]
     Active Substance: DULOXETINE
  7. LAMOTRIGINE [Concomitant]
     Active Substance: LAMOTRIGINE
  8. NEUPRO [Concomitant]
     Active Substance: ROTIGOTINE
  9. OMEPRAZOLE [Concomitant]
     Active Substance: OMEPRAZOLE
  10. RIVASTIGMINE [Concomitant]
     Active Substance: RIVASTIGMINE
  11. TYLENOL [Concomitant]
     Active Substance: ACETAMINOPHEN

REACTIONS (2)
  - Product dose omission in error [Recovered/Resolved]
  - Product dose omission issue [Recovered/Resolved]

NARRATIVE: CASE EVENT DATE: 20250407
